FAERS Safety Report 15403802 (Version 6)
Quarter: 2019Q2

REPORT INFORMATION
  Report Type: Spontaneous
  Country: DE (occurrence: DE)
  Receive Date: 20180919
  Receipt Date: 20190531
  Transmission Date: 20190711
  Serious: Yes (Hospitalization, Other)
  Sender: FDA-Public Use
  Company Number: DE-BRACCO-2018DE04840

PATIENT
  Age: 47 Year
  Sex: Male

DRUGS (2)
  1. PENTETATE ZINC TRISODIUM. [Concomitant]
     Active Substance: PENTETATE ZINC TRISODIUM
     Indication: URINE ANALYSIS
     Dosage: UNK
     Route: 042
     Dates: start: 20180830, end: 20180830
  2. MULTIHANCE [Suspect]
     Active Substance: GADOBENATE DIMEGLUMINE
     Indication: NUCLEAR MAGNETIC RESONANCE IMAGING HEART
     Dosage: 17 ML, SINGLE
     Route: 042
     Dates: start: 20170530, end: 20170530

REACTIONS (26)
  - Tinnitus [Unknown]
  - Contrast media toxicity [Unknown]
  - Bone pain [Unknown]
  - Back pain [Unknown]
  - Dizziness [Not Recovered/Not Resolved]
  - Fatigue [Unknown]
  - Syncope [Unknown]
  - Body temperature decreased [Unknown]
  - Neck pain [Unknown]
  - Chest pain [Not Recovered/Not Resolved]
  - Mucosal disorder [Unknown]
  - Pain [Unknown]
  - Coordination abnormal [Unknown]
  - Palpitations [Not Recovered/Not Resolved]
  - Myalgia [Not Recovered/Not Resolved]
  - Flushing [Not Recovered/Not Resolved]
  - Diarrhoea [Not Recovered/Not Resolved]
  - Muscle twitching [Unknown]
  - Throat tightness [Unknown]
  - Hyperhidrosis [Not Recovered/Not Resolved]
  - Asthenia [Not Recovered/Not Resolved]
  - Arthralgia [Unknown]
  - Mental disorder [Unknown]
  - Arrhythmia [Recovered/Resolved]
  - Throat irritation [Unknown]
  - Abdominal pain [Not Recovered/Not Resolved]

NARRATIVE: CASE EVENT DATE: 20170530
